FAERS Safety Report 19795167 (Version 1)
Quarter: 2021Q3

REPORT INFORMATION
  Report Type: Spontaneous
  Country: US (occurrence: US)
  Receive Date: 20210906
  Receipt Date: 20210906
  Transmission Date: 20211014
  Serious: Yes (Hospitalization, Other)
  Sender: FDA-Public Use
  Company Number: US-009507513-2109USA000563

PATIENT
  Age: 47 Year
  Sex: Male

DRUGS (1)
  1. KEYTRUDA [Suspect]
     Active Substance: PEMBROLIZUMAB
     Indication: ADENOCARCINOMA PANCREAS
     Dosage: 10 MILLIGRAM/KILOGRAM, IN 14?DAY CYLCES
     Route: 042
     Dates: start: 2016, end: 2017

REACTIONS (4)
  - Diabetic ketoacidosis [Unknown]
  - Inappropriate schedule of product administration [Unknown]
  - Type 1 diabetes mellitus [Unknown]
  - Incorrect dose administered [Unknown]

NARRATIVE: CASE EVENT DATE: 2016
